FAERS Safety Report 11935073 (Version 1)
Quarter: 2016Q1

REPORT INFORMATION
  Report Type: Spontaneous
  Country: US (occurrence: None)
  Receive Date: 20160120
  Receipt Date: 20160120
  Transmission Date: 20160526
  Serious: Yes (Disabling)
  Sender: FDA-Public Use
  Company Number: None

PATIENT
  Age: 49 Year
  Sex: Male
  Weight: 88.91 kg

DRUGS (3)
  1. ZETIA [Suspect]
     Active Substance: EZETIMIBE
     Indication: BLOOD CHOLESTEROL INCREASED
     Dosage: 1 ONCE DAILY TAKEN BY MOUTH
     Route: 048
     Dates: start: 20150824, end: 20160114
  2. AMLODIPINE [Suspect]
     Active Substance: AMLODIPINE BESYLATE
  3. LISINOPRIL. [Concomitant]
     Active Substance: LISINOPRIL

REACTIONS (9)
  - Walking aid user [None]
  - Dysgeusia [None]
  - Muscle disorder [None]
  - Liver disorder [None]
  - Arthropathy [None]
  - Pain in extremity [None]
  - Cardiac disorder [None]
  - Arthralgia [None]
  - Musculoskeletal disorder [None]

NARRATIVE: CASE EVENT DATE: 20160111
